FAERS Safety Report 19827978 (Version 1)
Quarter: 2021Q3

REPORT INFORMATION
  Report Type: Spontaneous
  Country: JP (occurrence: JP)
  Receive Date: 20210914
  Receipt Date: 20210914
  Transmission Date: 20211014
  Serious: Yes (Other)
  Sender: FDA-Public Use
  Company Number: JP-GLAXOSMITHKLINE-JP2021JPN192100

PATIENT
  Age: 53 Year
  Sex: Female

DRUGS (31)
  1. ARNUITY ELLIPTA [Suspect]
     Active Substance: FLUTICASONE FUROATE
     Indication: CHEST DISCOMFORT
  2. MONTELUKAST SODIUM. [Concomitant]
     Active Substance: MONTELUKAST SODIUM
     Indication: CHRONIC EOSINOPHILIC RHINOSINUSITIS
     Dosage: 10 MG, 1D
  3. SPIRIVA RESPIMAT [Concomitant]
     Active Substance: TIOTROPIUM BROMIDE
     Indication: EOSINOPHILIC OTITIS MEDIA
  4. PREDNISOLONE. [Concomitant]
     Active Substance: PREDNISOLONE
     Indication: CHRONIC EOSINOPHILIC RHINOSINUSITIS
     Dosage: 25 MG, 1D
     Route: 048
     Dates: start: 202006
  5. MEPOLIZUMAB [Suspect]
     Active Substance: MEPOLIZUMAB
     Indication: CHRONIC EOSINOPHILIC RHINOSINUSITIS
     Dosage: UNK
     Dates: start: 202007
  6. MEPOLIZUMAB [Suspect]
     Active Substance: MEPOLIZUMAB
     Indication: ASTHMA
  7. BENRALIZUMAB. [Concomitant]
     Active Substance: BENRALIZUMAB
     Indication: EOSINOPHILIC OTITIS MEDIA
  8. MONTELUKAST SODIUM. [Concomitant]
     Active Substance: MONTELUKAST SODIUM
     Indication: EOSINOPHILIC OTITIS MEDIA
  9. CELESTAMINE COMBINATION TABLETS [Concomitant]
     Indication: CHRONIC EOSINOPHILIC RHINOSINUSITIS
     Dosage: UNK, QOD
     Route: 048
  10. ARNUITY ELLIPTA [Suspect]
     Active Substance: FLUTICASONE FUROATE
     Indication: CHRONIC EOSINOPHILIC RHINOSINUSITIS
     Dosage: 100 ?G, QD
     Dates: start: 2020
  11. MEPOLIZUMAB [Suspect]
     Active Substance: MEPOLIZUMAB
     Indication: EOSINOPHILIC OTITIS MEDIA
  12. BENRALIZUMAB. [Concomitant]
     Active Substance: BENRALIZUMAB
     Indication: CHRONIC EOSINOPHILIC RHINOSINUSITIS
     Dosage: UNK
  13. SYMBICORT [Concomitant]
     Active Substance: BUDESONIDE\FORMOTEROL FUMARATE DIHYDRATE
     Indication: ASTHMA
  14. MONTELUKAST SODIUM. [Concomitant]
     Active Substance: MONTELUKAST SODIUM
     Indication: ASTHMA
  15. SPIRIVA RESPIMAT [Concomitant]
     Active Substance: TIOTROPIUM BROMIDE
     Indication: CHRONIC EOSINOPHILIC RHINOSINUSITIS
     Dosage: 2 DF, 1D
     Route: 055
  16. CELESTAMINE COMBINATION TABLETS [Concomitant]
     Indication: ASTHMA
  17. PREDNISOLONE. [Concomitant]
     Active Substance: PREDNISOLONE
     Indication: EOSINOPHILIC OTITIS MEDIA
     Dosage: TAPERED BEFORE DISCONTINUATION AT NEXT 5 MONTHS
  18. PREDNISOLONE. [Concomitant]
     Active Substance: PREDNISOLONE
     Indication: ASTHMA
  19. TRELEGY ELLIPTA [Suspect]
     Active Substance: FLUTICASONE FUROATE\UMECLIDINIUM BROMIDE\VILANTEROL TRIFENATATE
     Indication: EOSINOPHILIC OTITIS MEDIA
  20. ARNUITY ELLIPTA [Suspect]
     Active Substance: FLUTICASONE FUROATE
     Indication: ASTHMA
  21. BENRALIZUMAB. [Concomitant]
     Active Substance: BENRALIZUMAB
     Indication: ASTHMA
  22. DUPILUMAB (GENETICAL RECOMBINATION) [Concomitant]
     Active Substance: DUPILUMAB
     Indication: CHRONIC EOSINOPHILIC RHINOSINUSITIS
     Dosage: 300 MG
     Route: 058
     Dates: start: 201912
  23. DUPILUMAB (GENETICAL RECOMBINATION) [Concomitant]
     Active Substance: DUPILUMAB
     Indication: EOSINOPHILIC OTITIS MEDIA
  24. SPIRIVA RESPIMAT [Concomitant]
     Active Substance: TIOTROPIUM BROMIDE
     Indication: ASTHMA
  25. ARNUITY ELLIPTA [Suspect]
     Active Substance: FLUTICASONE FUROATE
     Indication: EOSINOPHILIC OTITIS MEDIA
  26. DUPILUMAB (GENETICAL RECOMBINATION) [Concomitant]
     Active Substance: DUPILUMAB
     Indication: ASTHMA
  27. CELESTAMINE COMBINATION TABLETS [Concomitant]
     Indication: EOSINOPHILIC OTITIS MEDIA
  28. TRELEGY ELLIPTA [Suspect]
     Active Substance: FLUTICASONE FUROATE\UMECLIDINIUM BROMIDE\VILANTEROL TRIFENATATE
     Indication: CHRONIC EOSINOPHILIC RHINOSINUSITIS
     Dosage: 1 DF, QD
     Route: 055
  29. TRELEGY ELLIPTA [Suspect]
     Active Substance: FLUTICASONE FUROATE\UMECLIDINIUM BROMIDE\VILANTEROL TRIFENATATE
     Indication: ASTHMA
  30. SYMBICORT [Concomitant]
     Active Substance: BUDESONIDE\FORMOTEROL FUMARATE DIHYDRATE
     Indication: CHRONIC EOSINOPHILIC RHINOSINUSITIS
     Dosage: 8 TIMES DAILY
  31. SYMBICORT [Concomitant]
     Active Substance: BUDESONIDE\FORMOTEROL FUMARATE DIHYDRATE
     Indication: EOSINOPHILIC OTITIS MEDIA

REACTIONS (16)
  - Chronic eosinophilic rhinosinusitis [Unknown]
  - Nasal congestion [Unknown]
  - Tympanic membrane disorder [Recovered/Resolved]
  - Duplicate therapy error [Unknown]
  - Product use in unapproved indication [Unknown]
  - Condition aggravated [Unknown]
  - Dysphonia [Unknown]
  - Deafness [Recovered/Resolved]
  - Upper-airway cough syndrome [Unknown]
  - Eosinophilia [Unknown]
  - Parosmia [Recovered/Resolved]
  - Otorrhoea [Unknown]
  - Eosinophilic pneumonia chronic [Unknown]
  - Therapeutic product effect incomplete [Unknown]
  - Eosinophilic otitis media [Unknown]
  - Chest discomfort [Recovered/Resolved]

NARRATIVE: CASE EVENT DATE: 2020
